FAERS Safety Report 18527754 (Version 1)
Quarter: 2020Q4

REPORT INFORMATION
  Report Type: Spontaneous
  Country: US (occurrence: US)
  Receive Date: 20201120
  Receipt Date: 20201120
  Transmission Date: 20210114
  Serious: No
  Sender: FDA-Public Use
  Company Number: US-TEVA-2020-US-1850533

PATIENT
  Age: 72 Year
  Sex: Female
  Weight: 55.79 kg

DRUGS (1)
  1. METHYLPREDNISOLONE. [Suspect]
     Active Substance: METHYLPREDNISOLONE
     Dosage: DOSE: 40MG IV PIGGYBACK EVERY TIME THAT SHE HAS TO HAVE PLATELETS
     Route: 042
     Dates: start: 201903

REACTIONS (1)
  - Hypertension [Unknown]
